FAERS Safety Report 11559868 (Version 1)
Quarter: 2015Q3

REPORT INFORMATION
  Report Type: Spontaneous
  Country: US (occurrence: None)
  Receive Date: 20150925
  Receipt Date: 20150925
  Transmission Date: 20151125
  Serious: Yes (Hospitalization)
  Sender: FDA-Public Use
  Company Number: None

PATIENT
  Age: 80 Year
  Sex: Male
  Weight: 87.4 kg

DRUGS (2)
  1. RITUXIMAB (MOAB C2B8 ANTI CD20, CHIMERIC) [Suspect]
     Active Substance: RITUXIMAB
     Dates: end: 20150922
  2. BENDAMUSTINE HYDROCHLORIDE [Suspect]
     Active Substance: BENDAMUSTINE HYDROCHLORIDE
     Dosage: DAY 2 BENDAMUSTINE ADMINISTRATION STOPPED
     Dates: end: 20150922

REACTIONS (4)
  - Infusion related reaction [None]
  - Tremor [None]
  - Chills [None]
  - Body temperature increased [None]

NARRATIVE: CASE EVENT DATE: 20150923
